FAERS Safety Report 14349811 (Version 2)
Quarter: 2018Q1

REPORT INFORMATION
  Report Type: Spontaneous
  Country: US (occurrence: US)
  Receive Date: 20180104
  Receipt Date: 20180104
  Transmission Date: 20180509
  Serious: No
  Sender: FDA-Public Use
  Company Number: US-DRREDDYS-USA/USA/17/0086372

PATIENT
  Age: 53 Year
  Sex: Female
  Weight: 61.23 kg

DRUGS (1)
  1. HABITROL [Suspect]
     Active Substance: NICOTINE
     Indication: SMOKING CESSATION THERAPY
     Route: 061
     Dates: start: 20170108

REACTIONS (3)
  - Disturbance in attention [Recovering/Resolving]
  - Nicotine dependence [Recovering/Resolving]
  - Product quality issue [Unknown]
